FAERS Safety Report 12306169 (Version 2)
Quarter: 2016Q2

REPORT INFORMATION
  Report Type: Report from Study
  Country: US (occurrence: US)
  Receive Date: 20160426
  Receipt Date: 20160506
  Transmission Date: 20160815
  Serious: Yes (Hospitalization, Other)
  Sender: FDA-Public Use
  Company Number: US-GILEAD-2016-0210168

PATIENT
  Age: 61 Year
  Sex: Male

DRUGS (8)
  1. FISH OIL [Concomitant]
     Active Substance: FISH OIL
     Dosage: 1000 UNK, QD
  2. RANOLAZINE [Suspect]
     Active Substance: RANOLAZINE
     Indication: ANGINA PECTORIS
     Dosage: 500 MG, UNK
     Route: 048
  3. CLOPIDOGREL [Concomitant]
     Active Substance: CLOPIDOGREL BISULFATE
     Dosage: 75 UNK, QD
  4. ASA [Concomitant]
     Active Substance: ASPIRIN
     Dosage: 81 MG, QD
  5. FUROSEMIDE. [Concomitant]
     Active Substance: FUROSEMIDE
     Dosage: 20 UNK, QD
  6. AVAPRO [Concomitant]
     Active Substance: IRBESARTAN
     Dosage: 300 UNK, QD
  7. COUMADIN [Concomitant]
     Active Substance: WARFARIN SODIUM
     Dosage: 7.5 UNK, UNK
  8. METOPROLOL. [Concomitant]
     Active Substance: METOPROLOL
     Dosage: 200 UNK, QD

REACTIONS (2)
  - Neoplasm malignant [Unknown]
  - Dyspnoea [Unknown]
